FAERS Safety Report 7455704-3 (Version None)
Quarter: 2011Q2

REPORT INFORMATION
  Report Type: 
  Country: None (occurrence: None)
  Receive Date: 20110503
  Receipt Date: 20110420
  Transmission Date: 20111010
  Serious: Yes (Hospitalization)
  Sender: FDA-Public Use
  Company Number: US-ACTELION-A-US2011-47854

PATIENT

DRUGS (3)
  1. REVATIO [Concomitant]
  2. VENTAVIS [Suspect]
     Indication: PULMONARY ARTERIAL HYPERTENSION
     Dosage: UNK ?G, UNK
     Route: 055
  3. VENTAVIS [Suspect]
     Dosage: UNK ?G, UNK
     Route: 055
     Dates: start: 20080711

REACTIONS (1)
  - PAIN IN EXTREMITY [None]
